FAERS Safety Report 14730778 (Version 1)
Quarter: 2018Q2

REPORT INFORMATION
  Report Type: Spontaneous
  Country: US (occurrence: US)
  Receive Date: 20180402
  Receipt Date: 20180402
  Transmission Date: 20180711
  Serious: Yes (Other)
  Sender: FDA-Public Use
  Company Number: None

PATIENT
  Age: 75 Year
  Sex: Female
  Weight: 85.05 kg

DRUGS (12)
  1. MUTI-VITAMIN [Concomitant]
  2. ASPIRIN. [Concomitant]
     Active Substance: ASPIRIN
  3. LOSARTAN. [Concomitant]
     Active Substance: LOSARTAN
  4. BACLOFEN. [Concomitant]
     Active Substance: BACLOFEN
  5. GLIMEPIRIDE. [Concomitant]
     Active Substance: GLIMEPIRIDE
  6. HYDROCHLOROTHIAZIDE. [Concomitant]
     Active Substance: HYDROCHLOROTHIAZIDE
  7. SIMVASTATIN. [Concomitant]
     Active Substance: SIMVASTATIN
  8. NIACIN. [Concomitant]
     Active Substance: NIACIN
  9. PIOGLITAZONE. [Suspect]
     Active Substance: PIOGLITAZONE
     Indication: HYPERTENSION
     Dosage: QUANTITY:90 TABLET(S); AT BEDTIME?
     Route: 048
     Dates: start: 20180312, end: 20180329
  10. BARE BACK AND BODY [Concomitant]
  11. BCOMPLEX [Concomitant]
  12. D-3 [Concomitant]
     Active Substance: CHOLECALCIFEROL

REACTIONS (5)
  - Malaise [None]
  - Abdominal pain upper [None]
  - Swelling [None]
  - Weight increased [None]
  - Dyspnoea [None]

NARRATIVE: CASE EVENT DATE: 20180323
